FAERS Safety Report 4738177-0 (Version None)
Quarter: 2005Q3

REPORT INFORMATION
  Report Type: 
  Country: None (occurrence: None)
  Receive Date: 20050804
  Receipt Date: 20050721
  Transmission Date: 20060218
  Serious: Yes (Disabling)
  Sender: FDA-Public Use
  Company Number: 2005AP000579

PATIENT
  Age: 38 Year
  Sex: Female

DRUGS (3)
  1. FLUOXETINE HYDROCHLORIDE [Suspect]
     Indication: DEPRESSION
     Dosage: 20 MG; QD; PO
     Route: 048
     Dates: start: 20050401, end: 20050719
  2. BUSPAR [Concomitant]
  3. SYNTHROID [Concomitant]

REACTIONS (2)
  - GAIT DISTURBANCE [None]
  - VISUAL DISTURBANCE [None]
